FAERS Safety Report 6268978-1 (Version None)
Quarter: 2009Q3

REPORT INFORMATION
  Report Type: 
  Country: None (occurrence: None)
  Receive Date: 20090715
  Receipt Date: 20090706
  Transmission Date: 20100115
  Serious: Yes (Death, Other)
  Sender: FDA-Public Use
  Company Number: US-ABBOTT-07P-163-0377570-00

PATIENT
  Sex: Male

DRUGS (12)
  1. HUMIRA [Suspect]
     Indication: IRRITABLE BOWEL SYNDROME
     Route: 050
     Dates: start: 20061101, end: 20070601
  2. HUMIRA [Suspect]
     Indication: COLITIS
     Dates: start: 20061101
  3. HUMIRA [Suspect]
     Indication: COLITIS ULCERATIVE
  4. HUMIRA [Suspect]
     Indication: INFLAMMATORY BOWEL DISEASE
  5. REMICADE LYOPHILISAT [Suspect]
     Indication: COLITIS ULCERATIVE
     Route: 042
     Dates: start: 20020701, end: 20060307
  6. REMICADE LYOPHILISAT [Suspect]
     Indication: INFLAMMATORY BOWEL DISEASE
  7. MERCAPTOPURINE [Suspect]
     Indication: COLITIS ULCERATIVE
     Dates: start: 19991001, end: 20070401
  8. MERCAPTOPURINE [Suspect]
     Indication: INFLAMMATORY BOWEL DISEASE
  9. ASACOL [Concomitant]
     Indication: IRRITABLE BOWEL SYNDROME
  10. ASACOL [Concomitant]
     Indication: COLITIS
  11. PREDNISONE TAB [Concomitant]
     Indication: INFLAMMATORY BOWEL DISEASE
  12. PREDNISONE TAB [Concomitant]
     Indication: COLITIS ULCERATIVE

REACTIONS (8)
  - ANAEMIA [None]
  - ANXIETY [None]
  - EMOTIONAL DISTRESS [None]
  - FEAR [None]
  - HEPATOSPLENIC T-CELL LYMPHOMA [None]
  - INJURY [None]
  - IRRITABLE BOWEL SYNDROME [None]
  - PAIN [None]
